FAERS Safety Report 7425070-8 (Version None)
Quarter: 2011Q2

REPORT INFORMATION
  Report Type: 
  Country: None (occurrence: None)
  Receive Date: 20110420
  Receipt Date: 20110411
  Transmission Date: 20111010
  Serious: Yes (Hospitalization)
  Sender: FDA-Public Use
  Company Number: DE-BIOGENIDEC-2011BI008436

PATIENT
  Age: 59 Year
  Sex: Female

DRUGS (3)
  1. LEVOTHYROXINE SODIUM [Concomitant]
  2. IBRUPROFEN [Concomitant]
     Indication: PAIN
  3. TYSABRI [Suspect]
     Indication: RELAPSING-REMITTING MULTIPLE SCLEROSIS
     Route: 042
     Dates: start: 20091112

REACTIONS (4)
  - PSYCHOSOMATIC DISEASE [None]
  - PANIC DISORDER [None]
  - HYPERTONIA [None]
  - SINUS TACHYCARDIA [None]
